FAERS Safety Report 9264881 (Version 1)
Quarter: 2013Q2

REPORT INFORMATION
  Report Type: Spontaneous
  Country: DK (occurrence: DK)
  Receive Date: 20130501
  Receipt Date: 20130501
  Transmission Date: 20140414
  Serious: Yes (Other)
  Sender: FDA-Public Use
  Company Number: PHHY2013DK038749

PATIENT
  Age: 17 Year
  Sex: Female
  Weight: 96 kg

DRUGS (1)
  1. RITALIN UNO [Suspect]
     Indication: ATTENTION DEFICIT/HYPERACTIVITY DISORDER
     Dosage: 40 MG, DAILY
     Route: 048
     Dates: start: 201212, end: 201303

REACTIONS (2)
  - Menstrual disorder [Recovered/Resolved]
  - Alanine aminotransferase increased [Recovered/Resolved]
